FAERS Safety Report 10161585 (Version 1)
Quarter: 2014Q2

REPORT INFORMATION
  Report Type: Report from Study
  Country: IT (occurrence: IT)
  Receive Date: 20140509
  Receipt Date: 20140509
  Transmission Date: 20141212
  Serious: Yes (Hospitalization)
  Sender: FDA-Public Use
  Company Number: IT-ROCHE-1395446

PATIENT
  Sex: 0

DRUGS (4)
  1. BEVACIZUMAB [Suspect]
     Indication: OVARIAN CANCER
     Dosage: MOST RECENT TREATMENT DATE 03/APR/2014
     Route: 065
     Dates: start: 20121213
  2. CARBOPLATIN [Suspect]
     Indication: OVARIAN CANCER
     Dosage: MOST RECENT TREATMENT DATE 03/APR/2014
     Route: 065
     Dates: start: 20121213
  3. PACLITAXEL [Suspect]
     Indication: OVARIAN CANCER
     Dosage: MOST RECENT TREATMENT DATE 03/APR/2014
     Route: 065
     Dates: start: 20121213
  4. SELEPARINA [Concomitant]
     Route: 065

REACTIONS (1)
  - Aortic thrombosis [Not Recovered/Not Resolved]
